FAERS Safety Report 6170734-X (Version None)
Quarter: 2009Q2

REPORT INFORMATION
  Report Type: 
  Country: None (occurrence: None)
  Receive Date: 20090427
  Receipt Date: 20090413
  Transmission Date: 20091009
  Serious: Yes (Hospitalization)
  Sender: FDA-Public Use
  Company Number: ADE#09-110DPR

PATIENT
  Age: 85 Year
  Sex: Male

DRUGS (4)
  1. DIGOXIN [Suspect]
     Indication: CARDIAC DISORDER
     Dosage: 1/2 TABLET DAILY
  2. HUMALOG [Concomitant]
  3. NOVOLIN N INSULIN [Concomitant]
  4. SEVERAL UNSPECIFIED MEDICATIONS [Concomitant]

REACTIONS (3)
  - MYOCARDIAL INFARCTION [None]
  - PERICARDIAL EFFUSION [None]
  - PLEURAL EFFUSION [None]
